FAERS Safety Report 8469813-3 (Version None)
Quarter: 2012Q2

REPORT INFORMATION
  Report Type: 
  Country: None (occurrence: None)
  Receive Date: 20120626
  Receipt Date: 20120613
  Transmission Date: 20120825
  Serious: Yes (Other)
  Sender: FDA-Public Use
  Company Number: US-ELI_LILLY_AND_COMPANY-US201206005567

PATIENT
  Age: 69 Year
  Sex: Female

DRUGS (2)
  1. CYMBALTA [Suspect]
     Indication: DEPRESSION
     Dosage: 30 MG, QD
  2. CYMBALTA [Suspect]
     Dosage: 60 MG, QD

REACTIONS (10)
  - MOUTH HAEMORRHAGE [None]
  - SUICIDAL IDEATION [None]
  - GASTRIC ULCER [None]
  - WITHDRAWAL SYNDROME [None]
  - STRESS [None]
  - DEPRESSION [None]
  - CRYING [None]
  - STOMATITIS [None]
  - ORAL PAIN [None]
  - ORAL HERPES [None]
